FAERS Safety Report 24954545 (Version 2)
Quarter: 2025Q2

REPORT INFORMATION
  Report Type: Spontaneous
  Country: JP (occurrence: JP)
  Receive Date: 20250211
  Receipt Date: 20250603
  Transmission Date: 20250716
  Serious: Yes (Death, Life-Threatening, Hospitalization, Other)
  Sender: ASTELLAS
  Company Number: JP-ASTELLAS-2024-AER-012375

PATIENT
  Age: 65 Year
  Sex: Male
  Weight: 71 kg

DRUGS (33)
  1. PADCEV [Suspect]
     Active Substance: ENFORTUMAB VEDOTIN-EJFV
     Indication: Malignant neoplasm of renal pelvis
     Route: 042
     Dates: start: 20241011, end: 20241011
  2. PADCEV [Suspect]
     Active Substance: ENFORTUMAB VEDOTIN-EJFV
     Indication: Ureteric cancer
     Route: 042
     Dates: end: 20241018
  3. PADCEV [Suspect]
     Active Substance: ENFORTUMAB VEDOTIN-EJFV
     Indication: Bladder cancer
  4. PREDONINE [Concomitant]
     Active Substance: PREDNISOLONE
     Indication: Rash
     Route: 048
     Dates: start: 202410
  5. PREDONINE [Concomitant]
     Active Substance: PREDNISOLONE
     Indication: Stevens-Johnson syndrome
     Route: 048
     Dates: start: 202410
  6. PREDONINE [Concomitant]
     Active Substance: PREDNISOLONE
     Indication: Skin disorder
     Route: 048
     Dates: start: 20241027
  7. PREDONINE [Concomitant]
     Active Substance: PREDNISOLONE
     Route: 048
     Dates: start: 20241021
  8. FEBUXOSTAT [Concomitant]
     Active Substance: FEBUXOSTAT
     Indication: Product used for unknown indication
     Route: 048
     Dates: start: 20241009, end: 20241016
  9. BELSOMRA [Concomitant]
     Active Substance: SUVOREXANT
     Indication: Product used for unknown indication
     Route: 048
     Dates: start: 20241009
  10. MIYA-BM [Concomitant]
     Active Substance: CLOSTRIDIUM BUTYRICUM SPORES STRAIN M-55
     Indication: Product used for unknown indication
     Route: 048
     Dates: start: 20241009
  11. OMEPRAZOLE [Concomitant]
     Active Substance: OMEPRAZOLE
     Indication: Product used for unknown indication
     Route: 042
     Dates: start: 20241010, end: 20241023
  12. METOCLOPRAMIDE HYDROCHLORIDE [Concomitant]
     Active Substance: METOCLOPRAMIDE HYDROCHLORIDE
     Indication: Product used for unknown indication
     Route: 042
     Dates: start: 20241010
  13. Narusus tablet [Concomitant]
     Indication: Product used for unknown indication
     Route: 048
     Dates: start: 20241010
  14. Narurapid tablet [Concomitant]
     Indication: Product used for unknown indication
     Route: 048
     Dates: start: 20241010
  15. Symproic tablet [Concomitant]
     Indication: Product used for unknown indication
     Route: 048
     Dates: start: 20241010
  16. Keytruda intravenous drip infusion [Concomitant]
     Indication: Malignant neoplasm of renal pelvis
     Route: 042
     Dates: start: 20241011, end: 20241011
  17. Keytruda intravenous drip infusion [Concomitant]
     Indication: Ureteric cancer
  18. Keytruda intravenous drip infusion [Concomitant]
     Indication: Bladder cancer
  19. Rasuritek intravenous drip infusion [Concomitant]
     Indication: Product used for unknown indication
     Route: 042
     Dates: start: 20241011, end: 20241011
  20. heparin analog oily Cr [Concomitant]
     Indication: Product used for unknown indication
     Route: 042
     Dates: start: 20241011
  21. Rinderon ointment [Concomitant]
     Indication: Skin disorder
     Route: 042
     Dates: start: 20241014
  22. CALCIUM GLUCONATE [Concomitant]
     Active Substance: CALCIUM GLUCONATE
     Indication: Product used for unknown indication
     Route: 065
     Dates: start: 20241015
  23. DEXTROSE [Concomitant]
     Active Substance: DEXTROSE MONOHYDRATE
     Indication: Product used for unknown indication
     Route: 065
     Dates: start: 20241015
  24. INSULIN NOS [Concomitant]
     Active Substance: INSULIN NOS
     Indication: Product used for unknown indication
     Route: 065
     Dates: start: 20241015
  25. CALCIUM POLYSTYRENE SULFONATE [Concomitant]
     Active Substance: CALCIUM POLYSTYRENE SULFONATE
     Indication: Product used for unknown indication
     Route: 065
     Dates: start: 20241015
  26. CLOBETASOL PROPIONATE [Concomitant]
     Active Substance: CLOBETASOL PROPIONATE
     Indication: Skin disorder
     Route: 042
     Dates: start: 20241018
  27. PIPERACILLIN SODIUM\TAZOBACTAM SODIUM [Concomitant]
     Active Substance: PIPERACILLIN SODIUM\TAZOBACTAM SODIUM
     Indication: Product used for unknown indication
     Route: 048
     Dates: start: 20241021
  28. Florid gel [Concomitant]
     Indication: Oral candidiasis
     Route: 048
     Dates: start: 20241027
  29. SOLU-MEDROL [Concomitant]
     Active Substance: METHYLPREDNISOLONE SODIUM SUCCINATE
     Indication: Skin disorder
     Route: 048
     Dates: start: 20241028, end: 20241030
  30. SOLU-MEDROL [Concomitant]
     Active Substance: METHYLPREDNISOLONE SODIUM SUCCINATE
     Indication: Stevens-Johnson syndrome
  31. PREDONINE [Concomitant]
     Active Substance: PREDNISOLONE
     Indication: Skin disorder
     Route: 042
     Dates: start: 20241031
  32. PREDONINE [Concomitant]
     Active Substance: PREDNISOLONE
     Route: 042
     Dates: start: 20241108
  33. PREDONINE [Concomitant]
     Active Substance: PREDNISOLONE
     Route: 042
     Dates: start: 20241115

REACTIONS (4)
  - Stevens-Johnson syndrome [Recovering/Resolving]
  - Infusion related reaction [Recovering/Resolving]
  - Rash [Recovered/Resolved]
  - Hepatic failure [Fatal]

NARRATIVE: CASE EVENT DATE: 20241011
